FAERS Safety Report 6387659-7 (Version None)
Quarter: 2009Q3

REPORT INFORMATION
  Report Type: 
  Country: None (occurrence: None)
  Receive Date: 20090930
  Receipt Date: 20090916
  Transmission Date: 20100115
  Serious: Yes (Other)
  Sender: FDA-Public Use
  Company Number: ALA_00362_2009

PATIENT
  Sex: Male

DRUGS (1)
  1. REGLAN [Suspect]
     Indication: DRUG USE FOR UNKNOWN INDICATION
     Dosage: (DF)

REACTIONS (1)
  - SEROTONIN SYNDROME [None]
